FAERS Safety Report 24341168 (Version 4)
Quarter: 2024Q4

REPORT INFORMATION
  Report Type: Spontaneous
  Country: US (occurrence: US)
  Receive Date: 20240919
  Receipt Date: 20241222
  Transmission Date: 20250115
  Serious: No
  Sender: BAUSCH AND LOMB
  Company Number: US-BAUSCHBL-2024BNL033223

PATIENT
  Age: 83 Year
  Sex: Female
  Weight: 54.43 kg

DRUGS (2)
  1. MURO 128 [Suspect]
     Active Substance: SODIUM CHLORIDE
     Indication: Dry eye
     Route: 047
     Dates: start: 2023
  2. XIIDRA [Suspect]
     Active Substance: LIFITEGRAST
     Indication: Dry eye
     Route: 047
     Dates: start: 2022, end: 2022

REACTIONS (5)
  - Foreign body sensation in eyes [Recovering/Resolving]
  - Dysgeusia [Recovering/Resolving]
  - Drug ineffective [Unknown]
  - Product after taste [Unknown]
  - Product quality issue [Unknown]

NARRATIVE: CASE EVENT DATE: 20220101
